FAERS Safety Report 4719229-8 (Version None)
Quarter: 2005Q3

REPORT INFORMATION
  Report Type: 
  Country: None (occurrence: None)
  Receive Date: 20050718
  Receipt Date: 20050718
  Transmission Date: 20060218
  Serious: Yes (Life-Threatening, Hospitalization, Other)
  Sender: FDA-Public Use
  Company Number: None

PATIENT
  Sex: Female
  Weight: 58.9676 kg

DRUGS (2)
  1. PAXIL [Suspect]
     Indication: ANXIETY
     Dosage: 20MG. DAILY ORAL
     Route: 048
     Dates: start: 20021201, end: 20050715
  2. PAXIL [Suspect]
     Indication: POST-TRAUMATIC STRESS DISORDER
     Dosage: 20MG. DAILY ORAL
     Route: 048
     Dates: start: 20021201, end: 20050715

REACTIONS (13)
  - AGGRESSION [None]
  - DEPRESSION [None]
  - DEREALISATION [None]
  - DIPLOPIA [None]
  - DRUG DEPENDENCE [None]
  - DRUG WITHDRAWAL SYNDROME [None]
  - FEAR [None]
  - MIGRAINE [None]
  - SCAR [None]
  - SELF MUTILATION [None]
  - SPEECH DISORDER [None]
  - SUICIDE ATTEMPT [None]
  - THINKING ABNORMAL [None]
